FAERS Safety Report 11350252 (Version 1)
Quarter: 2015Q3

REPORT INFORMATION
  Report Type: Spontaneous
  Country: US (occurrence: None)
  Receive Date: 20150805
  Receipt Date: 20150805
  Transmission Date: 20151125
  Serious: Yes (Other)
  Sender: FDA-Public Use
  Company Number: None

PATIENT
  Age: 81 Year
  Sex: Male
  Weight: 79.5 kg

DRUGS (2)
  1. DORZOLAMIDE 2% [Concomitant]
  2. DORZOLAMIDE-TIMOLOL [Suspect]
     Active Substance: DORZOLAMIDE\TIMOLOL
     Indication: GLAUCOMA
     Route: 061
     Dates: start: 20140503, end: 20140523

REACTIONS (7)
  - Tension headache [None]
  - Instillation site foreign body sensation [None]
  - Ocular hyperaemia [None]
  - Dizziness [None]
  - Eye pain [None]
  - Product substitution issue [None]
  - Vision blurred [None]

NARRATIVE: CASE EVENT DATE: 20150617
